FAERS Safety Report 8944659 (Version 3)
Quarter: 2013Q1

REPORT INFORMATION
  Report Type: Report from Study
  Country: BE (occurrence: BE)
  Receive Date: 20121204
  Receipt Date: 20130108
  Transmission Date: 20140127
  Serious: Yes (Hospitalization, Other)
  Sender: FDA-Public Use
  Company Number: US-GILEAD-2012-0064022

PATIENT
  Age: 73 Year
  Sex: Male

DRUGS (13)
  1. RANOLAZINE [Suspect]
     Indication: ANGINA PECTORIS
     Dosage: 2 DF, BID
     Route: 048
     Dates: start: 20120915
  2. CORUNO [Concomitant]
     Indication: ANGINA PECTORIS
     Dosage: UNK
     Dates: start: 200401
  3. FORZATEN [Concomitant]
     Indication: HYPERTENSION
     Dosage: UNK
     Dates: start: 20100924
  4. LEVEMIR [Concomitant]
     Indication: DIABETES MELLITUS
     Dosage: UNK
     Dates: start: 200901
  5. NOVORAPID [Concomitant]
     Indication: DIABETES MELLITUS
     Dosage: UNK
     Dates: start: 200401
  6. GLUCOPHAGE [Concomitant]
     Indication: DIABETES MELLITUS
     Dosage: UNK
     Dates: start: 200401
  7. ASAFLOW [Concomitant]
     Indication: ISCHAEMIC HEART DISEASE PROPHYLAXIS
     Dosage: UNK
     Dates: start: 200901
  8. LIPANTHYL [Concomitant]
     Indication: HYPERCHOLESTEROLAEMIA
     Dosage: UNK
     Dates: start: 200609
  9. LIPITOR [Concomitant]
     Indication: HYPERCHOLESTEROLAEMIA
     Dosage: UNK
     Dates: start: 200412
  10. CLOPIDOGREL [Concomitant]
     Indication: THROMBOSIS PROPHYLAXIS
     Dosage: UNK
     Dates: start: 20120913
  11. AUGMENTIN                          /00756801/ [Concomitant]
     Indication: FEELING COLD
     Dosage: UNK
     Dates: start: 20120928
  12. TENORETIC [Concomitant]
     Indication: HYPERTENSION
     Dosage: UNK
     Dates: start: 20100929, end: 201211
  13. OMEPRAZOL                          /00661201/ [Concomitant]
     Indication: GASTRITIS PROPHYLAXIS
     Dosage: UNK

REACTIONS (3)
  - Hypoglycaemia [Recovered/Resolved]
  - Hypoglycaemia [Recovered/Resolved]
  - Syncope [Recovered/Resolved]
